FAERS Safety Report 8165286-9 (Version None)
Quarter: 2012Q1

REPORT INFORMATION
  Report Type: 
  Country: None (occurrence: None)
  Receive Date: 20120223
  Receipt Date: 20120223
  Transmission Date: 20120608
  Serious: No
  Sender: FDA-Public Use
  Company Number: None

PATIENT
  Sex: Male
  Weight: 68.9467 kg

DRUGS (1)
  1. ISOTRETINOIN [Suspect]
     Indication: ACNE
     Dosage: ISOTRETINOIN 40MG QDAY PO; ISOTRETINOIN 20MG Q DAY PO 5-11/11
     Route: 048

REACTIONS (2)
  - HALLUCINATION [None]
  - ANXIETY [None]
